FAERS Safety Report 4481495-4 (Version None)
Quarter: 2004Q3

REPORT INFORMATION
  Report Type: 
  Country: None (occurrence: None)
  Receive Date: 20040923
  Receipt Date: 20040707
  Transmission Date: 20050211
  Serious: No
  Sender: FDA-Public Use
  Company Number: USA040669749

PATIENT
  Age: 95 Year
  Sex: Female
  Weight: 45 kg

DRUGS (4)
  1. FORTEO [Suspect]
     Indication: OSTEOPOROSIS
     Dosage: 20 UG/1 DAY
  2. CALCIUM [Concomitant]
  3. VITAMIN D [Concomitant]
  4. CALCIUM [Concomitant]

REACTIONS (1)
  - BLOOD CALCIUM ABNORMAL [None]
